FAERS Safety Report 15990716 (Version 1)
Quarter: 2019Q1

REPORT INFORMATION
  Report Type: Spontaneous
  Country: IN (occurrence: IN)
  Receive Date: 20190221
  Receipt Date: 20190221
  Transmission Date: 20190418
  Serious: Yes (Other)
  Sender: FDA-Public Use
  Company Number: IN-MYLANLABS-2019M1015567

PATIENT
  Age: 38 Year
  Sex: Male

DRUGS (2)
  1. PREDNISOLONE. [Suspect]
     Active Substance: PREDNISOLONE
     Indication: ANGLE CLOSURE GLAUCOMA
     Dosage: IN BOTH EYES
     Route: 061
  2. TOPIRAMATE. [Suspect]
     Active Substance: TOPIRAMATE
     Indication: HEADACHE
     Dosage: 25 MILLIGRAM, QD
     Route: 048

REACTIONS (9)
  - Hypermetropia [Recovering/Resolving]
  - Chorioretinopathy [Unknown]
  - Flat anterior chamber of eye [Recovering/Resolving]
  - Myopia [Recovered/Resolved]
  - Maculopathy [Unknown]
  - Angle closure glaucoma [Recovering/Resolving]
  - Serous retinal detachment [Recovered/Resolved]
  - Choroidal effusion [Recovering/Resolving]
  - Stress [Unknown]
